FAERS Safety Report 14496675 (Version 1)
Quarter: 2018Q1

REPORT INFORMATION
  Report Type: Spontaneous
  Country: IT (occurrence: IT)
  Receive Date: 20180207
  Receipt Date: 20180207
  Transmission Date: 20180509
  Serious: Yes (Hospitalization, Other)
  Sender: FDA-Public Use
  Company Number: IT-CIPLA LTD.-2018IT02989

PATIENT

DRUGS (12)
  1. GEMCITABINE [Suspect]
     Active Substance: GEMCITABINE\GEMCITABINE HYDROCHLORIDE
     Indication: UTERINE LEIOMYOSARCOMA
     Dosage: UNK
     Route: 065
  2. DOXORUBICIN HYDROCHLORIDE. [Suspect]
     Active Substance: DOXORUBICIN HYDROCHLORIDE
     Indication: UTERINE LEIOMYOSARCOMA
     Dosage: UNK, SIX CYCLES
     Route: 065
  3. DACARBAZINE. [Suspect]
     Active Substance: DACARBAZINE
     Indication: UTERINE LEIOMYOSARCOMA
     Dosage: UNK, 3 CYCLES
     Route: 065
  4. TEMOZOLOMIDE. [Suspect]
     Active Substance: TEMOZOLOMIDE
     Indication: UTERINE LEIOMYOSARCOMA
     Dosage: 150 MG/M2, EVERY 4 WEEKS
     Route: 065
  5. IFOSFAMIDE. [Suspect]
     Active Substance: IFOSFAMIDE
     Indication: UTERINE LEIOMYOSARCOMA
     Dosage: UNK, SIX CYCLES
     Route: 065
  6. DOCETAXEL. [Suspect]
     Active Substance: DOCETAXEL
     Indication: UTERINE LEIOMYOSARCOMA
     Dosage: UNK
     Route: 065
  7. PACLITAXEL. [Suspect]
     Active Substance: PACLITAXEL
     Indication: UTERINE LEIOMYOSARCOMA
     Dosage: UNK, 19 CYCLES
     Route: 065
  8. IFOSFAMIDE. [Suspect]
     Active Substance: IFOSFAMIDE
     Dosage: UNK
  9. ANASTROZOLE. [Suspect]
     Active Substance: ANASTROZOLE
     Indication: UTERINE LEIOMYOSARCOMA
     Dosage: UNK
     Route: 065
  10. SORAFENIB [Suspect]
     Active Substance: SORAFENIB
     Indication: UTERINE LEIOMYOSARCOMA
     Dosage: UNK
     Route: 065
  11. TRABECTEDIN [Suspect]
     Active Substance: TRABECTEDIN
     Indication: UTERINE LEIOMYOSARCOMA
     Dosage: UNK, 8 CYCLES
     Route: 065
  12. DOXORUBICIN HYDROCHLORIDE. [Suspect]
     Active Substance: DOXORUBICIN HYDROCHLORIDE
     Dosage: UNK, 19 CYCLES
     Route: 065

REACTIONS (4)
  - Metastases to abdominal cavity [Unknown]
  - Toxicity to various agents [Unknown]
  - Malignant neoplasm progression [Unknown]
  - Gait disturbance [Recovered/Resolved]
